FAERS Safety Report 6924099-3 (Version None)
Quarter: 2010Q3

REPORT INFORMATION
  Report Type: 
  Country: None (occurrence: None)
  Receive Date: 20100813
  Receipt Date: 20100804
  Transmission Date: 20110219
  Serious: Yes (Death, Hospitalization)
  Sender: FDA-Public Use
  Company Number: JP-ROCHE-720044

PATIENT
  Age: 51 Year
  Sex: Male

DRUGS (3)
  1. PEGASYS [Suspect]
     Indication: HEPATITIS C
     Dosage: NOTE: DOSAGE IS UNCERTAIN.
     Route: 058
  2. COPEGUS [Suspect]
     Indication: HEPATITIS C
     Dosage: NOTE: DOSAGE IS UNCERTAIN.
     Route: 048
  3. PEG-INTRON [Concomitant]
     Dosage: NOTE: DOSAGE IS UNCERTAIN.
     Route: 058

REACTIONS (2)
  - AUTOIMMUNE HEPATITIS [None]
  - PNEUMOCYSTIS JIROVECI PNEUMONIA [None]
